FAERS Safety Report 4989192-3 (Version None)
Quarter: 2006Q1

REPORT INFORMATION
  Report Type: 
  Country: None (occurrence: None)
  Receive Date: 20060314
  Receipt Date: 20060120
  Transmission Date: 20060701
  Serious: Yes (Hospitalization)
  Sender: FDA-Public Use
  Company Number: 2006-00147

PATIENT
  Age: 64 Year
  Sex: Male
  Weight: 93 kg

DRUGS (9)
  1. VELCADE [Suspect]
     Indication: MULTIPLE MYELOMA
     Dosage: 1.30 MG/M2, INTRAVENOUS
     Route: 042
     Dates: start: 20050815, end: 20050818
  2. COUMADIN [Concomitant]
  3. AREDIA [Concomitant]
  4. ARANESP [Concomitant]
  5. CYANOCOBALAMIN [Concomitant]
  6. ANALGESICS [Concomitant]
  7. POTASSIUM (POTASSIUM) [Concomitant]
  8. DEXAMETHASONE [Concomitant]
  9. KYTRIL [Concomitant]

REACTIONS (4)
  - BLOOD UREA INCREASED [None]
  - CONSTIPATION [None]
  - DYSPNOEA [None]
  - IRON DEFICIENCY [None]
